FAERS Safety Report 6557637-3 (Version None)
Quarter: 2010Q1

REPORT INFORMATION
  Report Type: 
  Country: None (occurrence: None)
  Receive Date: 20100129
  Receipt Date: 20091215
  Transmission Date: 20100710
  Serious: No
  Sender: FDA-Public Use
  Company Number: A0835176A

PATIENT
  Age: 90 Year
  Sex: Female

DRUGS (8)
  1. FLOVENT [Suspect]
     Indication: CHRONIC OBSTRUCTIVE PULMONARY DISEASE
     Dosage: 2PUFF TWICE PER DAY
     Route: 055
     Dates: start: 20091201
  2. IMDUR [Concomitant]
  3. LOPROX [Concomitant]
  4. LEXAPRO [Concomitant]
  5. UNKNOWN MEDICATION [Concomitant]
  6. ASPIRIN [Concomitant]
  7. MUCINEX [Concomitant]
  8. WATER PILL [Concomitant]

REACTIONS (2)
  - JOINT SWELLING [None]
  - PRURITUS [None]
